FAERS Safety Report 8543653 (Version 2)
Quarter: 2012Q4

REPORT INFORMATION
  Report Type: 
  Country: US (occurrence: US)
  Receive Date: 20120503
  Receipt Date: 20120914
  Transmission Date: 20130627
  Serious: Yes (Hospitalization)
  Sender: FDA-Public Use
  Company Number: US-BAYER-2012-042036

PATIENT
  Age: 37 Year
  Sex: Female
  Weight: 58.96 kg

DRUGS (16)
  1. OCELLA [Suspect]
     Indication: ACNE
     Dosage: UNK
     Dates: start: 2009
  2. OCELLA [Suspect]
     Indication: POLYCYSTIC OVARIES
  3. YAZ [Suspect]
     Indication: ACNE
     Dosage: UNK
     Dates: start: 2009
  4. YAZ [Suspect]
     Indication: POLYCYSTIC OVARIES
  5. LAMICTAL [Concomitant]
     Indication: BIPOLAR DISORDER
     Dosage: UNK
     Dates: start: 2002
  6. GEODON [Concomitant]
     Indication: BIPOLAR DISORDER
     Dosage: UNK
     Dates: start: 2002
  7. ALPRAZOLAM [Concomitant]
     Indication: BIPOLAR DISORDER
     Dosage: UNK
     Dates: start: 2002
  8. ZOLPIDEM [Concomitant]
     Indication: BIPOLAR DISORDER
     Dosage: UNK
     Dates: start: 2002
  9. ADVAIR [Concomitant]
     Dosage: UNK
     Dates: start: 2006, end: 2010
  10. PHENTERMINE [Concomitant]
  11. DULCOLAX [BISACODYL] [Concomitant]
  12. MIRALAX [Concomitant]
  13. AMBIEN [Concomitant]
  14. LOMOTIL [ATROPINE SULFATE,DIPHENOXYLATE HYDROCHLORIDE] [Concomitant]
  15. XANAX [Concomitant]
  16. SINGULAIR [Concomitant]

REACTIONS (4)
  - Cholecystitis [None]
  - Injury [None]
  - Pain [None]
  - Abdominal pain upper [None]
